FAERS Safety Report 8531237 (Version 2)
Quarter: 2014Q1

REPORT INFORMATION
  Report Type: Report from Study
  Country: MX (occurrence: MX)
  Receive Date: 20120426
  Receipt Date: 20140303
  Transmission Date: 20141002
  Serious: Yes (Other)
  Sender: FDA-Public Use
  Company Number: PHHY2012MX032513

PATIENT
  Age: 32 Year
  Sex: Male

DRUGS (5)
  1. TEGRETOL [Suspect]
     Dosage: 2 G/100 ML, TWICE A DAY
  2. TEGRETOL [Suspect]
     Dosage: 2 G/100 ML, FOUR TIMES A DAY
  3. TEGRETOL [Suspect]
     Indication: EPILEPSY
     Dosage: UNK UKN, DAILY
     Route: 048
  4. TEGRETOL-XR [Suspect]
     Indication: EPILEPSY
     Dosage: UNK UKN, DAILY
     Route: 048
  5. TEGRETOL-XR [Suspect]
     Dosage: 8 DF, DAILY (3 TABLETS IN THE MORNING, 2 IN THE AFTERNOON AND 3 AT NIGHT, DAILY)
     Route: 048

REACTIONS (5)
  - Convulsion [Recovered/Resolved]
  - Diabetes mellitus [Not Recovered/Not Resolved]
  - Hypothyroidism [Not Recovered/Not Resolved]
  - Anxiety [Not Recovered/Not Resolved]
  - Insomnia [Not Recovered/Not Resolved]
